FAERS Safety Report 16639116 (Version 1)
Quarter: 2019Q3

REPORT INFORMATION
  Report Type: Spontaneous
  Country: FR (occurrence: FR)
  Receive Date: 20190726
  Receipt Date: 20190726
  Transmission Date: 20191004
  Serious: Yes (Other)
  Sender: FDA-Public Use
  Company Number: FR-MYLANLABS-2019M1070010

PATIENT
  Age: 44 Year
  Sex: Female
  Weight: 92 kg

DRUGS (1)
  1. TRAMADOL MYLAN 50 MG, G?LULE [Suspect]
     Active Substance: TRAMADOL
     Indication: SHOULDER ARTHROPLASTY
     Dosage: 2 DOSAGE FORM, QD
     Route: 048
     Dates: start: 20190307, end: 20190407

REACTIONS (4)
  - Gamma-glutamyltransferase increased [Not Recovered/Not Resolved]
  - Drug-induced liver injury [Not Recovered/Not Resolved]
  - Hypothyroidism [Not Recovered/Not Resolved]
  - Abscess [Not Recovered/Not Resolved]

NARRATIVE: CASE EVENT DATE: 20190410
